FAERS Safety Report 9850969 (Version 3)
Quarter: 2014Q1

REPORT INFORMATION
  Report Type: Spontaneous
  Country: US (occurrence: US)
  Receive Date: 20140128
  Receipt Date: 20140214
  Transmission Date: 20141002
  Serious: Yes (Death)
  Sender: FDA-Public Use
  Company Number: US-ACTELION-A-NJ2014-93833

PATIENT
  Age: 47 Year
  Sex: Male

DRUGS (1)
  1. VELETRI [Suspect]
     Indication: PULMONARY ARTERIAL HYPERTENSION
     Dosage: 12.0 NG/KG, PER MIN
     Route: 042
     Dates: start: 20130301, end: 20140113

REACTIONS (3)
  - Influenza [Fatal]
  - Pyrexia [Fatal]
  - Heart rate increased [Unknown]
